FAERS Safety Report 8763742 (Version 1)
Quarter: 2012Q4

REPORT INFORMATION
  Report Type: Spontaneous
  Country: US (occurrence: None)
  Receive Date: 20120831
  Receipt Date: 20120831
  Transmission Date: 20130627
  Serious: Yes (Disabling, Other)
  Sender: FDA-Public Use
  Company Number: None

PATIENT
  Age: 57 Year
  Sex: Male
  Weight: 80.29 kg

DRUGS (1)
  1. HEAD AND SHOULDER SHAMPOO [Suspect]
     Dosage: about one tablespoon
     Route: 061
     Dates: start: 20120807, end: 20120807

REACTIONS (1)
  - Alopecia [None]
